FAERS Safety Report 19879850 (Version 3)
Quarter: 2021Q4

REPORT INFORMATION
  Report Type: Spontaneous
  Country: PL (occurrence: PL)
  Receive Date: 20210924
  Receipt Date: 20211013
  Transmission Date: 20220303
  Serious: No
  Sender: FDA-Public Use
  Company Number: PL-LUPIN PHARMACEUTICALS INC.-2021-17976

PATIENT
  Age: 51 Year
  Sex: Female

DRUGS (3)
  1. ATORVASTATIN CALCIUM [Interacting]
     Active Substance: ATORVASTATIN CALCIUM
     Indication: Dyslipidaemia
     Dosage: UNK
     Route: 065
  2. AMIODARONE [Interacting]
     Active Substance: AMIODARONE
     Indication: Atrial fibrillation
     Dosage: UNK
     Route: 065
  3. TERBINAFINE [Interacting]
     Active Substance: TERBINAFINE
     Indication: Onychomycosis
     Dosage: UNK
     Route: 065

REACTIONS (4)
  - Dizziness [Recovering/Resolving]
  - Drug interaction [Unknown]
  - Contraindicated product administered [Unknown]
  - Drug level increased [Recovering/Resolving]
